APPROVED DRUG PRODUCT: GUANFACINE HYDROCHLORIDE
Active Ingredient: GUANFACINE HYDROCHLORIDE
Strength: EQ 1MG BASE
Dosage Form/Route: TABLET, EXTENDED RELEASE;ORAL
Application: A201382 | Product #001 | TE Code: AB
Applicant: TEVA PHARMACEUTICALS USA
Approved: Jun 2, 2015 | RLD: No | RS: No | Type: RX